FAERS Safety Report 7049752-5 (Version None)
Quarter: 2010Q4

REPORT INFORMATION
  Report Type: 
  Country: None (occurrence: None)
  Receive Date: 20101018
  Receipt Date: 20101009
  Transmission Date: 20110411
  Serious: Yes (Hospitalization)
  Sender: FDA-Public Use
  Company Number: B0679686A

PATIENT
  Sex: Female
  Weight: 43 kg

DRUGS (5)
  1. ROPINIROLE [Suspect]
     Indication: PARKINSON'S DISEASE
     Dates: start: 20100323
  2. MADOPAR [Concomitant]
     Indication: PARKINSON'S DISEASE
     Dosage: 500MG PER DAY
     Route: 048
  3. SINEMET [Concomitant]
     Indication: PARKINSON'S DISEASE
     Dosage: 375MG PER DAY
     Route: 048
     Dates: start: 20100518
  4. VITAMIN B6 [Concomitant]
     Indication: PARKINSON'S DISEASE
     Dosage: 40MG PER DAY
     Route: 048
  5. AMANTADINE [Concomitant]
     Indication: PARKINSON'S DISEASE
     Dosage: 300MG PER DAY
     Route: 048

REACTIONS (3)
  - ARTHRALGIA [None]
  - FALL [None]
  - HIP FRACTURE [None]
